FAERS Safety Report 4331770-9 (Version None)
Quarter: 2004Q2

REPORT INFORMATION
  Report Type: 
  Country: None (occurrence: None)
  Receive Date: 20040405
  Receipt Date: 20030703
  Transmission Date: 20050107
  Serious: No
  Sender: FDA-Public Use
  Company Number: US-GLAXOSMITHKLINE-A0416389A

PATIENT
  Age: 57 Year
  Sex: Female
  Weight: 59.1 kg

DRUGS (5)
  1. FLOVENT [Suspect]
     Indication: ASTHMA
     Dosage: 220MCG TWICE PER DAY
     Route: 055
     Dates: start: 20020701
  2. SINGULAIR [Concomitant]
     Dosage: 10MG UNKNOWN
     Route: 048
     Dates: start: 20030301
  3. LORATADINE [Concomitant]
     Dosage: 10MG PER DAY
     Route: 048
     Dates: start: 20030301
  4. LEVSIN PB [Concomitant]
     Dosage: .125MG PER DAY
     Route: 048
     Dates: start: 20030612
  5. RHINOCORT [Concomitant]
     Dosage: 4SPR PER DAY
     Route: 065
     Dates: start: 20020801

REACTIONS (2)
  - PARAESTHESIA [None]
  - PHARMACEUTICAL PRODUCT COMPLAINT [None]
